FAERS Safety Report 7558446-9 (Version None)
Quarter: 2011Q2

REPORT INFORMATION
  Report Type: 
  Country: None (occurrence: None)
  Receive Date: 20110620
  Receipt Date: 20110608
  Transmission Date: 20111010
  Serious: Yes (Hospitalization)
  Sender: FDA-Public Use
  Company Number: US-AMGEN-USASP2011029648

PATIENT
  Age: 43 Year
  Sex: Female

DRUGS (2)
  1. ENBREL [Suspect]
     Indication: RHEUMATOID ARTHRITIS
     Dosage: 50 MG, QWK
     Dates: start: 20070101
  2. PREDNISONE [Concomitant]

REACTIONS (8)
  - THERAPEUTIC RESPONSE DECREASED [None]
  - LUNG DISORDER [None]
  - WEIGHT INCREASED [None]
  - LOWER RESPIRATORY TRACT INFECTION [None]
  - GAIT DISTURBANCE [None]
  - MALAISE [None]
  - BLOOD GLUCOSE DECREASED [None]
  - RHEUMATOID ARTHRITIS [None]
